FAERS Safety Report 14092049 (Version 6)
Quarter: 2021Q4

REPORT INFORMATION
  Report Type: Spontaneous
  Country: TH (occurrence: TH)
  Receive Date: 20171016
  Receipt Date: 20211019
  Transmission Date: 20220303
  Serious: Yes (Other)
  Sender: FDA-Public Use
  Company Number: PHHY2017TH148880

PATIENT
  Age: 72 Year
  Sex: Male

DRUGS (55)
  1. ENTRESTO [Suspect]
     Active Substance: SACUBITRIL\VALSARTAN
     Indication: Product used for unknown indication
     Dosage: 50 MG, BID
     Route: 065
     Dates: start: 20160429
  2. ENTRESTO [Suspect]
     Active Substance: SACUBITRIL\VALSARTAN
     Dosage: 50 MG, BID
     Route: 065
     Dates: start: 20160511
  3. ENTRESTO [Suspect]
     Active Substance: SACUBITRIL\VALSARTAN
     Dosage: 100 MG, BID
     Route: 065
     Dates: start: 20160525
  4. ENTRESTO [Suspect]
     Active Substance: SACUBITRIL\VALSARTAN
     Dosage: 200 MG, BID
     Route: 065
     Dates: start: 20160608
  5. ATORVASTATIN [Concomitant]
     Active Substance: ATORVASTATIN
     Indication: Product used for unknown indication
     Dosage: 1 DF, QHS (AT BED TIME)
     Route: 065
     Dates: start: 20160421
  6. ATORVASTATIN [Concomitant]
     Active Substance: ATORVASTATIN
     Dosage: 1 DF, QHS (AT BED TIME)
     Route: 065
     Dates: start: 20160429
  7. ATORVASTATIN [Concomitant]
     Active Substance: ATORVASTATIN
     Dosage: 1 DF, QHS (AT BED TIME)
     Route: 065
     Dates: start: 20160511
  8. ATORVASTATIN [Concomitant]
     Active Substance: ATORVASTATIN
     Dosage: 1 DF, QHS (AT BED TIME)
     Route: 065
     Dates: start: 20160525
  9. ATORVASTATIN [Concomitant]
     Active Substance: ATORVASTATIN
     Dosage: 1 DF, QHS (AT BED TIME)
     Route: 065
     Dates: start: 20160608
  10. FUROSEMIDE [Concomitant]
     Active Substance: FUROSEMIDE
     Indication: Product used for unknown indication
     Dosage: 1 DF, BID (AC (BEFORE MEAL))
     Route: 065
     Dates: start: 20160421
  11. FUROSEMIDE [Concomitant]
     Active Substance: FUROSEMIDE
     Dosage: 1 DF, BID (AC (BEFORE MEAL))
     Route: 065
     Dates: start: 20160429, end: 20160511
  12. ASPIRIN [Concomitant]
     Active Substance: ASPIRIN
     Indication: Product used for unknown indication
     Dosage: 1 DF, QD (ONE IN MORNING AFTER MEAL)
     Route: 065
     Dates: start: 20160421, end: 20160525
  13. ASPIRIN [Concomitant]
     Active Substance: ASPIRIN
     Dosage: 1 DF, QD (ONE IN MORNING AFTER MEAL)
     Route: 065
     Dates: start: 20160429
  14. ASPIRIN [Concomitant]
     Active Substance: ASPIRIN
     Dosage: 1 DF, QD (ONE IN MORNING AFTER MEAL)
     Route: 065
     Dates: start: 20160511, end: 20160525
  15. OMEPRAZOLE [Concomitant]
     Active Substance: OMEPRAZOLE
     Indication: Product used for unknown indication
     Dosage: 1 DF, QD (ONE IN THE MORNING BEFORE MEAL)
     Route: 065
     Dates: start: 20160421
  16. OMEPRAZOLE [Concomitant]
     Active Substance: OMEPRAZOLE
     Dosage: 1 DF, QD (ONE IN THE MORNING BEFORE MEAL)
     Route: 065
     Dates: start: 20160429
  17. OMEPRAZOLE [Concomitant]
     Active Substance: OMEPRAZOLE
     Dosage: 1 DF, QD (ONE IN THE MORNING BEFORE MEAL)
     Route: 065
     Dates: start: 20160511, end: 20160525
  18. SPIRONOLACTONE [Concomitant]
     Active Substance: SPIRONOLACTONE
     Indication: Product used for unknown indication
     Dosage: 1 DF, QD (ONE IN THE MORNING AFTER MEAL)
     Route: 065
     Dates: start: 20160421
  19. SPIRONOLACTONE [Concomitant]
     Active Substance: SPIRONOLACTONE
     Dosage: 1 DF, QD (ONE IN THE MORNING AFTER MEAL)
     Route: 065
     Dates: start: 20160429
  20. SPIRONOLACTONE [Concomitant]
     Active Substance: SPIRONOLACTONE
     Dosage: 0.5 DF, QD (ONE IN THE MORNING AFTER MEAL)
     Route: 065
     Dates: start: 20160511, end: 20160525
  21. CARVEDILOL [Concomitant]
     Active Substance: CARVEDILOL
     Indication: Product used for unknown indication
     Dosage: 1 DF, BID (AFTER MEAL)
     Route: 065
     Dates: start: 20160421
  22. CARVEDILOL [Concomitant]
     Active Substance: CARVEDILOL
     Dosage: 1 DF, BID (AFTER MEAL)
     Route: 065
     Dates: start: 20160429
  23. CARVEDILOL [Concomitant]
     Active Substance: CARVEDILOL
     Dosage: 1 DF, BID (AFTER MEAL)
     Route: 065
     Dates: start: 20160511
  24. CARVEDILOL [Concomitant]
     Active Substance: CARVEDILOL
     Dosage: 1 DF, BID (AFTER MEAL)
     Route: 065
     Dates: start: 20160525
  25. CARVEDILOL [Concomitant]
     Active Substance: CARVEDILOL
     Dosage: 1 DF, BID (AFTER MEAL)
     Route: 065
     Dates: start: 20160608
  26. FERROUS FUMARATE [Concomitant]
     Active Substance: FERROUS FUMARATE
     Indication: Product used for unknown indication
     Dosage: 1 DF, TID (AFTER MEAL)
     Route: 065
     Dates: start: 20160421
  27. FERROUS FUMARATE [Concomitant]
     Active Substance: FERROUS FUMARATE
     Dosage: 1 DF, TID (AFTER MEAL)
     Route: 065
     Dates: start: 20160429
  28. FERROUS FUMARATE [Concomitant]
     Active Substance: FERROUS FUMARATE
     Dosage: 1 DF, TID (AFTER MEAL)
     Route: 065
     Dates: start: 20160511
  29. FERROUS FUMARATE [Concomitant]
     Active Substance: FERROUS FUMARATE
     Dosage: 1 DF, TID (AFTER MEAL)
     Route: 065
     Dates: start: 20160525
  30. FERROUS FUMARATE [Concomitant]
     Active Substance: FERROUS FUMARATE
     Dosage: 1 DF, TID (AFTER MEAL)
     Route: 065
     Dates: start: 20160608
  31. ALLOPURINOL [Concomitant]
     Active Substance: ALLOPURINOL
     Indication: Product used for unknown indication
     Dosage: 1 DF, BID (AFTER MEAL)
     Route: 065
     Dates: start: 20160421
  32. ALLOPURINOL [Concomitant]
     Active Substance: ALLOPURINOL
     Dosage: 1 DF, BID (AFTER MEAL)
     Route: 065
     Dates: start: 20160429
  33. ALLOPURINOL [Concomitant]
     Active Substance: ALLOPURINOL
     Dosage: 1 DF, BID (AFTER MEAL)
     Route: 065
     Dates: start: 20160511
  34. ALLOPURINOL [Concomitant]
     Active Substance: ALLOPURINOL
     Dosage: 1 DF, BID (AFTER MEAL)
     Route: 065
     Dates: start: 20160525
  35. ALLOPURINOL [Concomitant]
     Active Substance: ALLOPURINOL
     Dosage: 1 DF, QD (AFTER MEAL)
     Route: 065
     Dates: start: 20160808
  36. METFORMIN [Concomitant]
     Active Substance: METFORMIN HYDROCHLORIDE
     Indication: Product used for unknown indication
     Dosage: 1 DF, BID (AFTER MEAL)
     Route: 065
     Dates: start: 20160421
  37. METFORMIN [Concomitant]
     Active Substance: METFORMIN HYDROCHLORIDE
     Dosage: 1 DF, BID (AFTER MEAL)
     Route: 065
     Dates: start: 20160429
  38. METFORMIN [Concomitant]
     Active Substance: METFORMIN HYDROCHLORIDE
     Dosage: 1 DF, BID (AFTER MEAL)
     Route: 065
     Dates: start: 20160511
  39. METFORMIN [Concomitant]
     Active Substance: METFORMIN HYDROCHLORIDE
     Dosage: 1 DF, BID (AFTER MEAL)
     Route: 065
     Dates: start: 20160525
  40. METFORMIN [Concomitant]
     Active Substance: METFORMIN HYDROCHLORIDE
     Dosage: 1 DF, QD  (IN THE MORNING AFTER MEAL)
     Route: 065
     Dates: start: 20160808
  41. VITAMINS [Concomitant]
     Active Substance: VITAMINS
     Indication: Product used for unknown indication
     Dosage: 1 DF, QD (AFTER MEAL)
     Route: 065
     Dates: start: 20160421
  42. VITAMINS [Concomitant]
     Active Substance: VITAMINS
     Dosage: 1 DF, QD (AFTER MEAL)
     Route: 065
     Dates: start: 20160429
  43. VITAMINS [Concomitant]
     Active Substance: VITAMINS
     Dosage: 1 DF, QD (AFTER MEAL)
     Route: 065
     Dates: start: 20160511
  44. VITAMINS [Concomitant]
     Active Substance: VITAMINS
     Dosage: 1 DF, QD (AFTER MEAL)
     Route: 065
     Dates: start: 20160525
  45. VITAMINS [Concomitant]
     Active Substance: VITAMINS
     Dosage: 1 DF, QD (AFTER MEAL)
     Route: 065
     Dates: start: 20160608
  46. DAPAGLIFLOZIN [Concomitant]
     Active Substance: DAPAGLIFLOZIN
     Indication: Product used for unknown indication
     Dosage: 1 DF, QD (AFTER MEAL)
     Route: 065
     Dates: start: 20160421
  47. DAPAGLIFLOZIN [Concomitant]
     Active Substance: DAPAGLIFLOZIN
     Dosage: 1 DF, QD (AFTER MEAL)
     Route: 065
     Dates: start: 20160429
  48. DAPAGLIFLOZIN [Concomitant]
     Active Substance: DAPAGLIFLOZIN
     Dosage: 1 DF, QD (AFTER MEAL)
     Route: 065
     Dates: start: 20160511
  49. DAPAGLIFLOZIN [Concomitant]
     Active Substance: DAPAGLIFLOZIN
     Dosage: 1 DF, QD (AFTER MEAL)
     Route: 065
     Dates: start: 20160525
  50. DAPAGLIFLOZIN [Concomitant]
     Active Substance: DAPAGLIFLOZIN
     Dosage: 1 DF, QD (AFTER MEAL)
     Route: 065
     Dates: start: 20160608
  51. IVABRADINE [Concomitant]
     Active Substance: IVABRADINE
     Indication: Product used for unknown indication
     Dosage: 1 DF, QD (IN THE MORNING AFTER FOOD)
     Route: 065
     Dates: start: 20160421
  52. IVABRADINE [Concomitant]
     Active Substance: IVABRADINE
     Dosage: 1 DF, QD (IN THE MORNING AFTER FOOD)
     Route: 065
     Dates: start: 20160429
  53. IVABRADINE [Concomitant]
     Active Substance: IVABRADINE
     Dosage: 1 DF, QD (IN THE MORNING AFTER FOOD)
     Route: 065
     Dates: start: 20160511
  54. IVABRADINE [Concomitant]
     Active Substance: IVABRADINE
     Dosage: 1 DF, QD (IN THE MORNING AFTER FOOD)
     Route: 065
     Dates: start: 20160525
  55. IVABRADINE [Concomitant]
     Active Substance: IVABRADINE
     Dosage: 1 DF, QD (IN THE MORNING AFTER FOOD)
     Route: 065
     Dates: start: 20160608

REACTIONS (2)
  - Blood pressure fluctuation [Unknown]
  - Blood creatinine increased [Unknown]

NARRATIVE: CASE EVENT DATE: 20160511
